FAERS Safety Report 4475276-5 (Version None)
Quarter: 2004Q4

REPORT INFORMATION
  Report Type: 
  Country: None (occurrence: None)
  Receive Date: 20041013
  Receipt Date: 20041013
  Transmission Date: 20050328
  Serious: Yes (Hospitalization)
  Sender: FDA-Public Use
  Company Number: None

PATIENT
  Age: 59 Year
  Sex: Male
  Weight: 54.2956 kg

DRUGS (8)
  1. PHENYTOIN [Suspect]
     Indication: CONVULSION
     Dosage: 100MG PO TID
     Route: 048
  2. ANTABUSE [Concomitant]
  3. WELLBUTRIN SR [Concomitant]
  4. DILANTIN [Concomitant]
  5. ADVAIR DISKUS 100/50 [Concomitant]
  6. COMBIVENT [Concomitant]
  7. DOXEPIN HCL [Concomitant]
  8. AXID [Concomitant]

REACTIONS (6)
  - ATAXIA [None]
  - DRUG TOXICITY [None]
  - EUPHORIC MOOD [None]
  - FALL [None]
  - HALLUCINATION, VISUAL [None]
  - PSYCHOTIC DISORDER [None]
